FAERS Safety Report 4807520-6 (Version None)
Quarter: 2005Q4

REPORT INFORMATION
  Report Type: 
  Country: None (occurrence: None)
  Receive Date: 20051024
  Receipt Date: 20051013
  Transmission Date: 20060501
  Serious: Yes (Other)
  Sender: FDA-Public Use
  Company Number: ES-JNJFOC-20051002852

PATIENT
  Age: 69 Year
  Sex: Female
  Weight: 65 kg

DRUGS (9)
  1. TOPIRAMATE [Suspect]
     Indication: DRUG USE FOR UNKNOWN INDICATION
     Route: 048
  2. HALOPERIDOL [Suspect]
     Indication: DRUG USE FOR UNKNOWN INDICATION
     Route: 048
  3. STILNOX [Suspect]
     Indication: DRUG USE FOR UNKNOWN INDICATION
     Route: 048
  4. DUROGESIC MATRIX [Concomitant]
     Route: 062
  5. PRIMPERAN INJ [Concomitant]
     Route: 048
  6. ANAGASTRA [Concomitant]
     Route: 048
  7. PLANTABEN [Concomitant]
     Route: 065
  8. MASTICAL [Concomitant]
     Route: 065
  9. ACTIQ [Concomitant]
     Route: 065

REACTIONS (2)
  - HALLUCINATION [None]
  - THROMBOCYTOPENIA [None]
